FAERS Safety Report 4747827-4 (Version None)
Quarter: 2005Q3

REPORT INFORMATION
  Report Type: 
  Country: None (occurrence: None)
  Receive Date: 20050816
  Receipt Date: 20050726
  Transmission Date: 20060218
  Serious: Yes (Hospitalization)
  Sender: FDA-Public Use
  Company Number: 02100-USA-02-0290

PATIENT
  Age: 84 Year
  Sex: Female

DRUGS (13)
  1. PLETAL [Suspect]
     Indication: INTERMITTENT CLAUDICATION
     Dosage: 50 MG BID ORAL
     Route: 048
     Dates: start: 20021003, end: 20021011
  2. PLETAL [Suspect]
     Indication: INTERMITTENT CLAUDICATION
     Dosage: 100 MG BID ORAL
     Route: 048
     Dates: start: 20021003, end: 20021011
  3. PLETAL [Suspect]
     Indication: INTERMITTENT CLAUDICATION
     Dosage: 50 MG BID ORAL
     Route: 048
     Dates: start: 20021016
  4. PLETAL [Suspect]
     Indication: INTERMITTENT CLAUDICATION
     Dosage: 100 MG BID ORAL
     Route: 048
     Dates: start: 20021016
  5. AMLODIPINE BESILATE [Concomitant]
  6. MECLIZINE [Concomitant]
  7. LISINOPRIL [Concomitant]
  8. ATORVASTATIN [Concomitant]
  9. QUININE SULFATE [Concomitant]
  10. AMITRIPTYLINE HCL [Concomitant]
  11. IBUPROFEN [Concomitant]
  12. ISOSORBIDE MONONITRATE [Concomitant]
  13. FUROSEMIDE [Concomitant]

REACTIONS (2)
  - DYSPNOEA [None]
  - IMPAIRED HEALING [None]
